FAERS Safety Report 8968625 (Version 2)
Quarter: 2012Q4

REPORT INFORMATION
  Report Type: Spontaneous
  Country: PT (occurrence: None)
  Receive Date: 20121207
  Receipt Date: 20121214
  Transmission Date: 20130627
  Serious: Yes (Death, Other)
  Sender: FDA-Public Use
  Company Number: AUR-APL-2012-05137

PATIENT
  Age: 32 Year
  Sex: Male

DRUGS (8)
  1. PAROXETINE (PAROXETINE) [Suspect]
     Indication: DRUG USE FOR UNKNOWN INDICATION
  2. OLANZAPINE [Suspect]
  3. QUETIAPINE [Suspect]
  4. RISPERIDONE (RISPERIDONE) [Suspect]
  5. LORAZEPAM (LORAZEPAM) [Suspect]
  6. FLUOXETINE [Suspect]
  7. RISPERIDONE(RISPERIDONE) [Concomitant]
  8. DIAZEPAM(DIAZEPAM) [Concomitant]

REACTIONS (4)
  - Completed suicide [None]
  - Intentional overdose [None]
  - Toxicity to various agents [None]
  - Acute pulmonary oedema [None]
